FAERS Safety Report 12654172 (Version 1)
Quarter: 2016Q3

REPORT INFORMATION
  Report Type: Spontaneous
  Country: US (occurrence: None)
  Receive Date: 20160815
  Receipt Date: 20160815
  Transmission Date: 20161109
  Serious: No
  Sender: FDA-Public Use
  Company Number: None

PATIENT
  Age: 60 Year
  Sex: Female
  Weight: 62.6 kg

DRUGS (1)
  1. CHANTIX [Suspect]
     Active Substance: VARENICLINE TARTRATE
     Indication: SMOKING CESSATION THERAPY
     Dosage: 1 TABLET(S) EVERY 12 HOURS TAKEN BY MOUTH
     Route: 048
     Dates: start: 20160703

REACTIONS (3)
  - Ear pruritus [None]
  - Pruritus [None]
  - Ear swelling [None]

NARRATIVE: CASE EVENT DATE: 20160801
